FAERS Safety Report 14538952 (Version 1)
Quarter: 2018Q1

REPORT INFORMATION
  Report Type: Spontaneous
  Country: US (occurrence: US)
  Receive Date: 20180216
  Receipt Date: 20180216
  Transmission Date: 20180509
  Serious: Yes (Hospitalization, Other)
  Sender: FDA-Public Use
  Company Number: US-AMGEN-USASP2018020334

PATIENT
  Age: 75 Year
  Sex: Female

DRUGS (1)
  1. NEULASTA [Suspect]
     Active Substance: PEGFILGRASTIM
     Indication: IMMUNE ENHANCEMENT THERAPY
     Dosage: UNK UNK, Q2WK
     Route: 065

REACTIONS (2)
  - Corticobasal degeneration [Not Recovered/Not Resolved]
  - Off label use [Unknown]
